FAERS Safety Report 7958003-6 (Version None)
Quarter: 2011Q4

REPORT INFORMATION
  Report Type: 
  Country: None (occurrence: None)
  Receive Date: 20111205
  Receipt Date: 20111021
  Transmission Date: 20120403
  Serious: No
  Sender: FDA-Public Use
  Company Number: US-BAYER-2011-103123

PATIENT
  Age: 47 Year
  Sex: Female
  Weight: 58 kg

DRUGS (5)
  1. ALEVE (CAPLET) [Suspect]
     Indication: EPICONDYLITIS
  2. LEVOXYL [Concomitant]
     Indication: PRODUCT USED FOR UNKNOWN INDICATION
  3. ALEVE (CAPLET) [Suspect]
     Indication: TEMPOROMANDIBULAR JOINT SYNDROME
  4. FISH OIL [Concomitant]
     Indication: PRODUCT USED FOR UNKNOWN INDICATION
  5. ALEVE (CAPLET) [Suspect]
     Indication: ANALGESIC THERAPY
     Dosage: UNK
     Route: 048
     Dates: start: 20111007, end: 20111020

REACTIONS (3)
  - EPICONDYLITIS [None]
  - ABDOMINAL PAIN UPPER [None]
  - TEMPOROMANDIBULAR JOINT SYNDROME [None]
